FAERS Safety Report 25969857 (Version 1)
Quarter: 2025Q4

REPORT INFORMATION
  Report Type: Spontaneous
  Country: US (occurrence: None)
  Receive Date: 20251028
  Receipt Date: 20251028
  Transmission Date: 20260119
  Serious: No
  Sender: FDA-CTU
  Company Number: None

PATIENT

DRUGS (1)
  1. ONUREG [Suspect]
     Active Substance: AZACITIDINE

REACTIONS (5)
  - Haemoglobin decreased [None]
  - Therapy interrupted [None]
  - Nausea [None]
  - Influenza [None]
  - Hypophagia [None]
